FAERS Safety Report 4977383-7 (Version None)
Quarter: 2006Q2

REPORT INFORMATION
  Report Type: 
  Country: None (occurrence: None)
  Receive Date: 20060411
  Receipt Date: 20060403
  Transmission Date: 20061013
  Serious: Yes (Death)
  Sender: FDA-Public Use
  Company Number: 2006-140389-NL

PATIENT
  Age: 92 Year
  Sex: Female

DRUGS (7)
  1. DANAPAROID SODIUM [Suspect]
     Indication: DISSEMINATED INTRAVASCULAR COAGULATION
     Route: 042
  2. CIPROFLOXACIN HYDROCHLORIDE [Concomitant]
  3. PRODIF [Concomitant]
  4. PLATELETS [Concomitant]
  5. PLASMA PROTEIN FRACTION (HUMAN) [Concomitant]
  6. HUMAN RED BLOOD CELLS [Concomitant]
  7. PLASMA PROTEIN FRACTION (HUMAN) [Concomitant]

REACTIONS (3)
  - GASTROINTESTINAL HAEMORRHAGE [None]
  - HAEMOGLOBIN DECREASED [None]
  - LABORATORY TEST ABNORMAL [None]
